FAERS Safety Report 7085228-7 (Version None)
Quarter: 2010Q4

REPORT INFORMATION
  Report Type: 
  Country: None (occurrence: None)
  Receive Date: 20101105
  Receipt Date: 20101025
  Transmission Date: 20110411
  Serious: Yes (Other)
  Sender: FDA-Public Use
  Company Number: US-JNJFOC-20100806232

PATIENT
  Sex: Female
  Weight: 92.08 kg

DRUGS (8)
  1. REMICADE [Suspect]
     Indication: EPISCLERITIS
     Route: 042
  2. REMICADE [Suspect]
     Indication: PSORIASIS
     Route: 042
  3. ABILIFY [Concomitant]
     Indication: BIPOLAR DISORDER
  4. LYRICA [Concomitant]
     Indication: NEURALGIA
  5. ZANTAC [Concomitant]
     Indication: GASTRIC DISORDER
  6. PREVACID [Concomitant]
     Indication: GASTROOESOPHAGEAL REFLUX DISEASE
  7. LIDODERM [Concomitant]
     Indication: NEURALGIA
  8. CLONAZEPAM [Concomitant]
     Indication: SLEEP DISORDER

REACTIONS (10)
  - ABDOMINAL DISTENSION [None]
  - ABDOMINAL PAIN [None]
  - DRUG INEFFECTIVE [None]
  - NEURALGIA [None]
  - OCULAR HYPERAEMIA [None]
  - PSORIASIS [None]
  - RASH MACULAR [None]
  - RENAL PAIN [None]
  - SINUS DISORDER [None]
  - WEIGHT INCREASED [None]
